FAERS Safety Report 6313669-1 (Version None)
Quarter: 2009Q3

REPORT INFORMATION
  Report Type: 
  Country: None (occurrence: None)
  Receive Date: 20090817
  Receipt Date: 20090817
  Transmission Date: 20100115
  Serious: Yes (Other)
  Sender: FDA-Public Use
  Company Number: None

PATIENT
  Age: 65 Year
  Sex: Female
  Weight: 69.4003 kg

DRUGS (1)
  1. PAROXETINE HCL [Suspect]
     Indication: DEPRESSION
     Dosage: 30 MG ONCE A DAY PO
     Route: 048
     Dates: start: 20090508, end: 20090521

REACTIONS (7)
  - ACTIVITIES OF DAILY LIVING IMPAIRED [None]
  - ANXIETY [None]
  - DRUG WITHDRAWAL SYNDROME [None]
  - FATIGUE [None]
  - NIGHTMARE [None]
  - PRODUCT SUBSTITUTION ISSUE [None]
  - UNEVALUABLE EVENT [None]
